FAERS Safety Report 23261854 (Version 2)
Quarter: 2025Q4

REPORT INFORMATION
  Report Type: Spontaneous
  Country: US (occurrence: US)
  Receive Date: 20231205
  Receipt Date: 20251028
  Transmission Date: 20260117
  Serious: Yes (Hospitalization)
  Sender: MYLAN
  Company Number: US-MYLANLABS-2023M1127122

PATIENT
  Age: 43 Year
  Sex: Female

DRUGS (16)
  1. METHIMAZOLE [Suspect]
     Active Substance: METHIMAZOLE
     Indication: Thyrotoxic crisis
     Dosage: UNK, INITIAL DOSAGE NOT STATED
  2. METHIMAZOLE [Suspect]
     Active Substance: METHIMAZOLE
     Indication: Graves^ disease
     Dosage: 40 MILLIGRAM, BID (EVERY 12?HOURS)
  3. METHIMAZOLE [Suspect]
     Active Substance: METHIMAZOLE
     Indication: Hyperthyroidism
  4. DEXAMETHASONE [Suspect]
     Active Substance: DEXAMETHASONE
     Indication: Thyrotoxic crisis
     Dosage: 6 MILLIGRAM
  5. DEXAMETHASONE [Suspect]
     Active Substance: DEXAMETHASONE
     Indication: Liver injury
  6. DEXAMETHASONE [Suspect]
     Active Substance: DEXAMETHASONE
     Indication: Prophylaxis
  7. PROPYLTHIOURACIL [Suspect]
     Active Substance: PROPYLTHIOURACIL
     Indication: Thyrotoxic crisis
     Dosage: 200 MILLIGRAM, Q4H
  8. PROPYLTHIOURACIL [Suspect]
     Active Substance: PROPYLTHIOURACIL
     Indication: Hyperthyroidism
  9. REMDESIVIR [Suspect]
     Active Substance: REMDESIVIR
     Indication: COVID-19
     Dosage: 100 MILLIGRAM, SINGLE DOSE (THERAPY COMPLETED)
  10. HYDROCORTISONE [Concomitant]
     Active Substance: HYDROCORTISONE
     Indication: Thyrotoxic crisis
     Dosage: 100 MILLIGRAM, Q8H
  11. ESMOLOL [Concomitant]
     Active Substance: ESMOLOL HYDROCHLORIDE
     Indication: Atrial fibrillation
     Dosage: UNK, RECEIVED DRIP
  12. AMIODARONE [Concomitant]
     Active Substance: AMIODARONE
     Indication: Atrial fibrillation
     Dosage: 300 MILLIGRAM
  13. POTASSIUM IODIDE [Concomitant]
     Active Substance: POTASSIUM IODIDE
     Indication: Thyrotoxic crisis
     Dosage: UNK
  14. CHOLESTYRAMINE [Concomitant]
     Active Substance: CHOLESTYRAMINE
     Indication: Product used for unknown indication
     Dosage: UNK
  15. METOPROLOL [Concomitant]
     Active Substance: METOPROLOL
     Indication: Product used for unknown indication
     Dosage: UNK
  16. PROPOFOL [Concomitant]
     Active Substance: PROPOFOL
     Indication: Sedation
     Dosage: UNK

REACTIONS (4)
  - Acute hepatic failure [Recovered/Resolved]
  - Hepatitis cholestatic [Recovered/Resolved]
  - Drug ineffective [Unknown]
  - Treatment noncompliance [Unknown]
